FAERS Safety Report 5026209-4 (Version None)
Quarter: 2006Q2

REPORT INFORMATION
  Report Type: 
  Country: None (occurrence: None)
  Receive Date: 20060608
  Receipt Date: 20060601
  Transmission Date: 20061013
  Serious: Yes (Hospitalization, Other)
  Sender: FDA-Public Use
  Company Number: 200612254GDS

PATIENT
  Age: 60 Year
  Sex: Male
  Weight: 60 kg

DRUGS (3)
  1. GLUCOBAY [Suspect]
     Indication: DIABETES MELLITUS
     Dosage: 300 MG, TOTAL DAILY, ORAL
     Route: 048
  2. GLIMEPIRIDE [Suspect]
     Indication: DIABETES MELLITUS
     Dosage: 6 MG, TOTAL DAILY, UNK
     Route: 065
  3. PANIPENEM [Concomitant]

REACTIONS (17)
  - AMNESIA [None]
  - APATHY [None]
  - BLOOD PRESSURE INCREASED [None]
  - DEPRESSED LEVEL OF CONSCIOUSNESS [None]
  - DIARRHOEA [None]
  - FEELING ABNORMAL [None]
  - GLYCOSYLATED HAEMOGLOBIN INCREASED [None]
  - HYPOGLYCAEMIC COMA [None]
  - INFLUENZA LIKE ILLNESS [None]
  - LACUNAR INFARCTION [None]
  - MICROCYTIC ANAEMIA [None]
  - MOVEMENT DISORDER [None]
  - NASOPHARYNGITIS [None]
  - NAUSEA [None]
  - PNEUMONIA [None]
  - PYREXIA [None]
  - SPEECH DISORDER [None]
